FAERS Safety Report 16142064 (Version 1)
Quarter: 2019Q2

REPORT INFORMATION
  Report Type: Spontaneous
  Country: US (occurrence: US)
  Receive Date: 20190401
  Receipt Date: 20190401
  Transmission Date: 20190711
  Serious: No
  Sender: FDA-Public Use
  Company Number: US-009507513-1903USA002749

PATIENT
  Sex: Female
  Weight: 124.72 kg

DRUGS (1)
  1. NEXPLANON [Suspect]
     Active Substance: ETONOGESTREL
     Dosage: IMPLANT, LEFT ARM
     Route: 059
     Dates: start: 201801

REACTIONS (3)
  - Vomiting [Unknown]
  - Complication associated with device [Not Recovered/Not Resolved]
  - Pain in extremity [Unknown]
